FAERS Safety Report 23023819 (Version 2)
Quarter: 2024Q1

REPORT INFORMATION
  Report Type: Spontaneous
  Country: BG (occurrence: BG)
  Receive Date: 20231003
  Receipt Date: 20240202
  Transmission Date: 20240410
  Serious: Yes (Hospitalization, Other)
  Sender: FDA-Public Use
  Company Number: BG-BRISTOL-MYERS SQUIBB COMPANY-2023-138240

PATIENT
  Age: 51 Year
  Sex: Female

DRUGS (5)
  1. NIVOLUMAB [Suspect]
     Active Substance: NIVOLUMAB
     Indication: Malignant melanoma
     Route: 042
     Dates: start: 20210623
  2. NIVOLUMAB [Suspect]
     Active Substance: NIVOLUMAB
     Route: 042
     Dates: start: 20211004
  3. IPILIMUMAB [Suspect]
     Active Substance: IPILIMUMAB
     Indication: Malignant melanoma
     Route: 042
     Dates: start: 20210623
  4. PREDNISOLONE [Concomitant]
     Active Substance: PREDNISOLONE
  5. CHOLECALCIFEROL [Concomitant]
     Active Substance: CHOLECALCIFEROL
     Dosage: 2X20K/WEEK

REACTIONS (15)
  - Skin toxicity [Recovered/Resolved]
  - Colitis [Recovered/Resolved]
  - Tachycardia [Unknown]
  - Type 1 diabetes mellitus [Recovered/Resolved]
  - Goitre [Recovered/Resolved]
  - Nausea [Unknown]
  - Headache [Unknown]
  - Asthenia [Unknown]
  - Listless [Unknown]
  - Diabetic metabolic decompensation [Unknown]
  - Malignant neoplasm progression [Unknown]
  - Hepatitis [Recovered/Resolved]
  - Immune-mediated encephalitis [Unknown]
  - Hyperthyroidism [Unknown]
  - Off label use [Unknown]

NARRATIVE: CASE EVENT DATE: 20210712
